FAERS Safety Report 8883130 (Version 1)
Quarter: 2012Q4

REPORT INFORMATION
  Report Type: 
  Country: BE (occurrence: BE)
  Receive Date: 20121104
  Receipt Date: 20121104
  Transmission Date: 20130627
  Serious: Yes (Death)
  Sender: FDA-Public Use
  Company Number: BE-JNJFOC-20121017264

PATIENT
  Sex: Male

DRUGS (5)
  1. XARELTO [Suspect]
     Indication: CEREBROVASCULAR ACCIDENT PROPHYLAXIS
     Route: 048
     Dates: start: 20121017, end: 20121019
  2. XARELTO [Suspect]
     Indication: ATRIAL FIBRILLATION
     Route: 048
     Dates: start: 20121017, end: 20121019
  3. ZALDIAR [Concomitant]
     Indication: ARTHRALGIA
     Route: 065
  4. COZAAR [Concomitant]
     Indication: HYPERTENSION
     Route: 065
  5. SINTROM [Concomitant]
     Route: 065

REACTIONS (1)
  - Sudden death [Fatal]
